FAERS Safety Report 20430487 (Version 1)
Quarter: 2022Q1

REPORT INFORMATION
  Report Type: Report from Study
  Country: FR (occurrence: FR)
  Receive Date: 20220204
  Receipt Date: 20220204
  Transmission Date: 20220423
  Serious: Yes (Hospitalization)
  Sender: FDA-Public Use
  Company Number: FR-SERVIER-S20009218

PATIENT

DRUGS (7)
  1. PEGASPARGASE [Suspect]
     Active Substance: PEGASPARGASE
     Indication: Acute lymphocytic leukaemia
     Dosage: 3525 IU ON DAYS D12 AND D26
     Route: 042
     Dates: start: 20200625, end: 20200709
  2. TN  UNSPECIFIED [Concomitant]
     Indication: Acute lymphocytic leukaemia
     Dosage: 2 MG (D8, D15, D22, D29)
     Route: 042
     Dates: start: 20200622, end: 20200713
  3. TN UNSPCIFIED [Concomitant]
     Indication: Acute lymphocytic leukaemia
     Dosage: 43 MG (D8, D15, D22, D29)
     Route: 042
     Dates: start: 20200622, end: 20200713
  4. TN  UNSPECIFIED [Concomitant]
     Indication: Acute lymphocytic leukaemia
     Dosage: 30 MG (D9, D13, D18, D24)
     Route: 037
     Dates: start: 20200623, end: 20200709
  5. TN  UNSPECIFIED [Concomitant]
     Indication: Acute lymphocytic leukaemia
     Dosage: 15 MG (D9, D13, D18, D24)
     Route: 037
     Dates: start: 20200623, end: 20200709
  6. TN  UNSPECIFIED [Concomitant]
     Indication: Acute lymphocytic leukaemia
     Dosage: 15 MG (D9, D13, D18, D24)
     Route: 037
     Dates: start: 20200622, end: 20200709
  7. TN  UNSPECIFIED [Concomitant]
     Indication: Acute lymphocytic leukaemia
     Dosage: 85 MG (D8 TO D28)
     Route: 048
     Dates: start: 20200622, end: 20200712

REACTIONS (1)
  - Bronchopulmonary aspergillosis [Recovered/Resolved]

NARRATIVE: CASE EVENT DATE: 20200722
